FAERS Safety Report 5730422-8 (Version None)
Quarter: 2008Q2

REPORT INFORMATION
  Report Type: 
  Country: None (occurrence: None)
  Receive Date: 20080502
  Receipt Date: 20080418
  Transmission Date: 20081010
  Serious: Yes (Death, Hospitalization, Other)
  Sender: FDA-Public Use
  Company Number: 2008S1006882

PATIENT
  Age: 21 Year
  Sex: Female

DRUGS (1)
  1. AZATHIOPRINE [Suspect]
     Indication: CROHN'S DISEASE
     Dosage: 100 NG; DAILY

REACTIONS (6)
  - ACUTE MYELOID LEUKAEMIA [None]
  - DISEASE COMPLICATION [None]
  - FUNGAEMIA [None]
  - RESPIRATORY FAILURE [None]
  - SEPTIC SHOCK [None]
  - TRICHOSPORON INFECTION [None]
